FAERS Safety Report 12546581 (Version 3)
Quarter: 2016Q3

REPORT INFORMATION
  Report Type: Spontaneous
  Country: JP (occurrence: JP)
  Receive Date: 20160711
  Receipt Date: 20160921
  Transmission Date: 20161109
  Serious: Yes (Hospitalization, Other)
  Sender: FDA-Public Use
  Company Number: JP-BRISTOL-MYERS SQUIBB COMPANY-BMS-2016-037324

PATIENT
  Age: 76 Year
  Sex: Male

DRUGS (3)
  1. OPDIVO [Suspect]
     Active Substance: NIVOLUMAB
     Dosage: 130 MG, Q2MO
     Route: 041
     Dates: start: 20160526, end: 20160526
  2. OPDIVO [Suspect]
     Active Substance: NIVOLUMAB
     Dosage: 130 MG, Q2MO
     Route: 041
     Dates: start: 201605, end: 201605
  3. OPDIVO [Suspect]
     Active Substance: NIVOLUMAB
     Indication: NON-SMALL CELL LUNG CANCER RECURRENT
     Dosage: 130 MG, Q2MO
     Route: 041
     Dates: start: 20160421, end: 20160421

REACTIONS (6)
  - Blood creatine phosphokinase increased [Unknown]
  - Decreased appetite [Recovered/Resolved]
  - Colitis [Recovering/Resolving]
  - Myositis [Unknown]
  - Pyrexia [Not Recovered/Not Resolved]
  - Asthenia [Unknown]

NARRATIVE: CASE EVENT DATE: 20160423
